FAERS Safety Report 7931584-4 (Version None)
Quarter: 2011Q4

REPORT INFORMATION
  Report Type: 
  Country: None (occurrence: None)
  Receive Date: 20111121
  Receipt Date: 20091020
  Transmission Date: 20120403
  Serious: Yes (Other)
  Sender: FDA-Public Use
  Company Number: US-ENDO PHARMACEUTICALS INC.-PRED20110121

PATIENT
  Sex: Male
  Weight: 96 kg

DRUGS (4)
  1. MITOXANTRONE [Suspect]
     Indication: PROSTATE CANCER METASTATIC
     Dates: start: 20090205, end: 20090723
  2. ZOMETA [Suspect]
     Indication: PRODUCT USED FOR UNKNOWN INDICATION
     Dosage: UNKNOWN
     Dates: start: 20090430
  3. PREDNISONE TAB [Suspect]
     Indication: PROSTATE CANCER METASTATIC
     Dosage: UNKNOWN
     Route: 048
     Dates: start: 20090205
  4. IMC-1121B [Suspect]
     Indication: PROSTATE CANCER METASTATIC
     Dates: start: 20090205, end: 20090730

REACTIONS (1)
  - OSTEONECROSIS OF JAW [None]
